FAERS Safety Report 8806120 (Version 2)
Quarter: 2014Q2

REPORT INFORMATION
  Report Type: Spontaneous
  Country: US (occurrence: US)
  Receive Date: 20120925
  Receipt Date: 20131024
  Transmission Date: 20141212
  Serious: Yes (Other)
  Sender: FDA-Public Use
  Company Number: US-PFIZER INC-2012235676

PATIENT
  Age: 69 Year
  Sex: Female
  Weight: 67.12 kg

DRUGS (5)
  1. ENBREL [Suspect]
     Dosage: 50 MG, QWK
     Route: 058
  2. METHOTREXATE SODIUM [Suspect]
     Dosage: UNK
  3. PREDNISONE [Concomitant]
     Dosage: 10 MG, UNK
  4. LEVOTHYROXINE [Concomitant]
     Dosage: 100 MG, UNK
  5. BONIVA [Concomitant]
     Dosage: 150 MG, UNK

REACTIONS (4)
  - Pulmonary fibrosis [Unknown]
  - Pneumonia [Unknown]
  - Bronchitis [Unknown]
  - Feeling abnormal [Unknown]
